FAERS Safety Report 7024838-X (Version None)
Quarter: 2010Q4

REPORT INFORMATION
  Report Type: 
  Country: None (occurrence: None)
  Receive Date: 20101001
  Receipt Date: 20100922
  Transmission Date: 20110411
  Serious: Yes (Hospitalization)
  Sender: FDA-Public Use
  Company Number: JP-GENZYME-POMP-1001065

PATIENT
  Sex: Female
  Weight: 33 kg

DRUGS (1)
  1. MYOZYME [Suspect]
     Indication: GLYCOGEN STORAGE DISEASE TYPE II
     Dosage: 50 MG, Q2W
     Route: 042
     Dates: start: 20061210

REACTIONS (5)
  - MUSCLE ATROPHY [None]
  - OROPHARYNGEAL PAIN [None]
  - PNEUMOMEDIASTINUM [None]
  - PNEUMOTHORAX [None]
  - SUBCUTANEOUS EMPHYSEMA [None]
